FAERS Safety Report 13797406 (Version 1)
Quarter: 2017Q3

REPORT INFORMATION
  Report Type: Spontaneous
  Country: IT (occurrence: IT)
  Receive Date: 20170727
  Receipt Date: 20170727
  Transmission Date: 20171127
  Serious: Yes (Other)
  Sender: FDA-Public Use
  Company Number: IT-B.I. PHARMACEUTICALS,INC./RIDGEFIELD-2017-BI-007413

PATIENT
  Sex: Female
  Weight: 70 kg

DRUGS (4)
  1. EN [Concomitant]
     Active Substance: DELORAZEPAM
     Indication: ANXIETY
     Route: 065
  2. EN [Concomitant]
     Active Substance: DELORAZEPAM
     Route: 065
  3. PRADAXA [Suspect]
     Active Substance: DABIGATRAN ETEXILATE MESYLATE
     Indication: ATRIAL FIBRILLATION
     Dosage: AT 09:00 AFTER BREAKFAST AND AFTER DINNER AT 21:00
     Route: 065
     Dates: start: 20170202
  4. MODURETIC 5-50 [Concomitant]
     Active Substance: AMILORIDE HYDROCHLORIDE\HYDROCHLOROTHIAZIDE
     Indication: PRODUCT USED FOR UNKNOWN INDICATION
     Route: 065

REACTIONS (10)
  - Extrasystoles [Unknown]
  - Angina pectoris [Unknown]
  - Pruritus [Unknown]
  - Abdominal pain upper [Unknown]
  - Tremor [Unknown]
  - Dizziness [Recovering/Resolving]
  - Chest pain [Unknown]
  - Malaise [Recovering/Resolving]
  - Urticaria [Unknown]
  - Swelling [Recovering/Resolving]

NARRATIVE: CASE EVENT DATE: 20170204
